FAERS Safety Report 4293125-5 (Version None)
Quarter: 2004Q1

REPORT INFORMATION
  Report Type: 
  Country: None (occurrence: None)
  Receive Date: 20040212
  Receipt Date: 20030509
  Transmission Date: 20041129
  Serious: No
  Sender: FDA-Public Use
  Company Number: US-GLAXOSMITHKLINE-A0407867A

PATIENT
  Age: 84 Year
  Sex: Male

DRUGS (6)
  1. PAXIL [Suspect]
     Indication: DEPRESSION
     Route: 048
     Dates: start: 20030509
  2. PLAVIX [Concomitant]
  3. DIOVAN [Concomitant]
  4. NORVASC [Concomitant]
  5. COREG [Concomitant]
  6. LASIX [Concomitant]

REACTIONS (3)
  - DIZZINESS [None]
  - DRY MOUTH [None]
  - RHINORRHOEA [None]
